FAERS Safety Report 10191013 (Version 2)
Quarter: 2014Q2

REPORT INFORMATION
  Report Type: Spontaneous
  Country: JP (occurrence: JP)
  Receive Date: 20140523
  Receipt Date: 20140610
  Transmission Date: 20141212
  Serious: Yes (Other)
  Sender: FDA-Public Use
  Company Number: JP-JNJFOC-20140511824

PATIENT
  Age: 82 Year
  Sex: Male

DRUGS (3)
  1. TRAMCET [Suspect]
     Indication: PAIN
     Route: 048
     Dates: start: 20140514
  2. ANTICOAGULANTS [Suspect]
     Indication: GLAUCOMA
     Route: 048
  3. ANTICOAGULANTS [Suspect]
     Indication: AGE-RELATED MACULAR DEGENERATION
     Route: 048

REACTIONS (1)
  - Retinal haemorrhage [Recovered/Resolved]
